FAERS Safety Report 10643157 (Version 1)
Quarter: 2014Q4

REPORT INFORMATION
  Report Type: Spontaneous
  Country: US (occurrence: None)
  Receive Date: 20141121
  Receipt Date: 20141121
  Transmission Date: 20150529
  Serious: Yes (Other)
  Sender: FDA-Public Use
  Company Number: 163-10004-14080517

PATIENT
  Age: 57 Year
  Sex: Female

DRUGS (18)
  1. HYDROCODONE /ACETAMINOPHEN (REMEDEINE) [Concomitant]
  2. CIPROFLOXACIN (CIPROFLOXACIN) [Concomitant]
     Active Substance: CIPROFLOXACIN
  3. VECTICAL [Concomitant]
     Active Substance: CALCITRIOL
  4. DESONIDE (DESONIDE) LOTION 0.05% [Concomitant]
     Active Substance: DESONIDE
  5. CALCIPOTRIENE (CALCIPOTRIOL) [Concomitant]
  6. LEVOTHYROXINE (LEVOTHYROXINE) [Concomitant]
     Active Substance: LEVOTHYROXINE
  7. CLOVEX (CLOPIDOGREL BISULFATE) [Concomitant]
  8. TOPIRAMATE (TOPIRAMATE) [Concomitant]
     Active Substance: TOPIRAMATE
  9. VENLAFAXINE [Concomitant]
     Active Substance: VENLAFAXINE HYDROCHLORIDE
  10. OMEPRAZOLE (OMEPRAZOLE) [Concomitant]
     Active Substance: OMEPRAZOLE
  11. SUMATRIPTAN. [Concomitant]
     Active Substance: SUMATRIPTAN
  12. HIBICLENS (CHLORHEXIDONE GLUCONATE) [Concomitant]
  13. RIZATRIPTAN (RIZATRIPTAN) [Concomitant]
     Active Substance: RIZATRIPTAN
  14. SF (SODIUM FLUORIDE) [Concomitant]
  15. CEPHALEXIN (CEFALEXIN) [Concomitant]
     Active Substance: CEPHALEXIN
  16. ATENOLOL (ATENOLOL) [Concomitant]
     Active Substance: ATENOLOL
  17. OTEZLA [Suspect]
     Active Substance: APREMILAST
     Indication: PSORIATIC ARTHROPATHY
     Route: 048
     Dates: start: 201407
  18. PRAVASTATIN [Concomitant]
     Active Substance: PRAVASTATIN\PRAVASTATIN SODIUM

REACTIONS (1)
  - Migraine [None]

NARRATIVE: CASE EVENT DATE: 201407
